FAERS Safety Report 20905011 (Version 1)
Quarter: 2022Q2

REPORT INFORMATION
  Report Type: Spontaneous
  Country: US (occurrence: None)
  Receive Date: 20220601
  Receipt Date: 20220601
  Transmission Date: 20220721
  Serious: Yes (Hospitalization)
  Sender: FDA-Public Use
  Company Number: None

PATIENT
  Age: 36 Year
  Sex: Female

DRUGS (1)
  1. DEFERASIROX [Suspect]
     Active Substance: DEFERASIROX
     Dosage: 360MG DAILY ORAL?
     Route: 048

REACTIONS (6)
  - Memory impairment [None]
  - Fatigue [None]
  - Red blood cell count decreased [None]
  - Product dose omission in error [None]
  - Abdominal pain [None]
  - Nausea [None]

NARRATIVE: CASE EVENT DATE: 20220601
